FAERS Safety Report 19599595 (Version 1)
Quarter: 2021Q3

REPORT INFORMATION
  Report Type: Report from Study
  Country: NO (occurrence: NO)
  Receive Date: 20210722
  Receipt Date: 20210722
  Transmission Date: 20211014
  Serious: Yes (Hospitalization)
  Sender: FDA-Public Use
  Company Number: NO-TAKEDA-2021TUS042384

PATIENT
  Age: 48 Year
  Sex: Male

DRUGS (8)
  1. REVESTIVE [Concomitant]
     Active Substance: TEDUGLUTIDE
     Indication: SHORT-BOWEL SYNDROME
     Dosage: 0.32 MILLIGRAM, QD
     Route: 058
     Dates: start: 2020
  2. TEDUGLUTIDE [Suspect]
     Active Substance: TEDUGLUTIDE
     Indication: PRODUCT USED FOR UNKNOWN INDICATION
     Dosage: 3.200 MILLIGRAM(0.0500 MG/KG), QD
     Route: 065
     Dates: start: 2020
  3. TEDUGLUTIDE [Suspect]
     Active Substance: TEDUGLUTIDE
     Indication: PRODUCT USED FOR UNKNOWN INDICATION
     Dosage: 3.200 MILLIGRAM(0.0500 MG/KG), QD
     Route: 065
     Dates: start: 2020
  4. FOLSYRE NAF [Concomitant]
     Active Substance: FOLIC ACID
     Indication: HYPERTHYROIDISM
     Dosage: 1 MILLIGRAM, QD
     Route: 048
     Dates: end: 2019
  5. TEDUGLUTIDE [Suspect]
     Active Substance: TEDUGLUTIDE
     Indication: PRODUCT USED FOR UNKNOWN INDICATION
     Dosage: 3.200 MILLIGRAM(0.0500 MG/KG), QD
     Route: 065
     Dates: start: 2020
  6. TEDUGLUTIDE [Suspect]
     Active Substance: TEDUGLUTIDE
     Indication: PRODUCT USED FOR UNKNOWN INDICATION
     Dosage: 3.200 MILLIGRAM(0.0500 MG/KG), QD
     Route: 065
     Dates: start: 2020
  7. DETREMIN [Concomitant]
     Indication: CROHN^S DISEASE
     Dosage: 10.00 GTTS (DROPS), QD
     Route: 048
     Dates: start: 2020
  8. STELARA [Concomitant]
     Active Substance: USTEKINUMAB
     Indication: CROHN^S DISEASE
     Dosage: 45.00 MILLIGRAM, Q6WEEKS
     Route: 058
     Dates: start: 20190228

REACTIONS (2)
  - Blood urine present [Recovered/Resolved]
  - Pyrexia [Recovered/Resolved]

NARRATIVE: CASE EVENT DATE: 20201016
